FAERS Safety Report 21638344 (Version 1)
Quarter: 2022Q4

REPORT INFORMATION
  Report Type: Spontaneous
  Country: US (occurrence: US)
  Receive Date: 20221124
  Receipt Date: 20221124
  Transmission Date: 20230113
  Serious: Yes (Other)
  Sender: FDA-Public Use
  Company Number: US-JNJFOC-20221151122

PATIENT

DRUGS (1)
  1. BENADRYL [Suspect]
     Active Substance: DIPHENHYDRAMINE HYDROCHLORIDE
     Indication: Anaphylactic reaction
     Route: 065

REACTIONS (5)
  - Gastrointestinal oedema [Unknown]
  - Off label use [Unknown]
  - Throat tightness [Unknown]
  - Allergic reaction to excipient [Unknown]
  - Diarrhoea [Unknown]
